FAERS Safety Report 6395228-8 (Version None)
Quarter: 2009Q4

REPORT INFORMATION
  Report Type: 
  Country: None (occurrence: None)
  Receive Date: 20091007
  Receipt Date: 20090923
  Transmission Date: 20100525
  Serious: Yes (Hospitalization, Other)
  Sender: FDA-Public Use
  Company Number: 2009AP003860

PATIENT
  Age: 70 Year
  Sex: Male

DRUGS (25)
  1. MELOXICAM [Suspect]
     Indication: MULTIPLE MYELOMA
  2. CEFEPIME [Suspect]
     Dosage: IV
     Route: 042
  3. FLUCONAZOLE [Suspect]
     Dosage: PO
     Route: 048
  4. THALIDOMIDE [Suspect]
     Indication: MULTIPLE MYELOMA
  5. PAMIDRONATE DISODIUM [Suspect]
     Indication: MULTIPLE MYELOMA
     Dosage: IVDRP
     Route: 041
  6. DEXAMETHASONE 0.5MG TAB [Suspect]
     Indication: MULTIPLE MYELOMA
  7. VANCOMYCIN HYDROCHLORIDE [Suspect]
     Dosage: IV
     Route: 042
  8. MORPHINE SULFATE [Suspect]
  9. ACETAMINOPHEN [Suspect]
  10. HEPARIN [Suspect]
  11. ENOXAPARIN SODIUM [Suspect]
  12. HYDROCODONE [Concomitant]
  13. RANITIDINE [Concomitant]
  14. OMEPRAZOLE [Concomitant]
  15. PROMETHAZINE HCL [Concomitant]
  16. LIDOCAINE [Concomitant]
  17. POLYETHYLENE GLYCOL [Concomitant]
  18. TESTOSTERONE ENANTHATE [Concomitant]
  19. NALOXONE HYDROCHLORIDE [Concomitant]
  20. PANTOPRAZOLE SODIUM [Concomitant]
  21. DIPHENHYDRAMINE HYDROCHLORIDE [Concomitant]
  22. ZOLPIDEM TARTRATE [Concomitant]
  23. AMIODARONE HYDROCHLORIDE [Concomitant]
  24. ALPRAZOLAM [Concomitant]
  25. NEUPOGEN [Concomitant]

REACTIONS (17)
  - ACUTE GENERALISED EXANTHEMATOUS PUSTULOSIS [None]
  - ATRIAL FIBRILLATION [None]
  - BACK PAIN [None]
  - BLISTER [None]
  - BLOOD CULTURE POSITIVE [None]
  - FEBRILE NEUTROPENIA [None]
  - HAEMATOCRIT DECREASED [None]
  - HAEMOGLOBIN DECREASED [None]
  - LETHARGY [None]
  - ORAL CANDIDIASIS [None]
  - OROPHARYNGEAL PAIN [None]
  - PSEUDOMONAS INFECTION [None]
  - PUSTULAR PSORIASIS [None]
  - STREPTOCOCCAL INFECTION [None]
  - TERMINAL STATE [None]
  - UNRESPONSIVE TO STIMULI [None]
  - WHITE BLOOD CELL COUNT DECREASED [None]
